FAERS Safety Report 4764754-7 (Version None)
Quarter: 2005Q3

REPORT INFORMATION
  Report Type: 
  Country: None (occurrence: None)
  Receive Date: 20050909
  Receipt Date: 20050902
  Transmission Date: 20060218
  Serious: Yes (Disabling)
  Sender: FDA-Public Use
  Company Number: DK-MERCK-0509DNK00005

PATIENT
  Age: 62 Year
  Sex: Female
  Weight: 108 kg

DRUGS (4)
  1. VIOXX [Suspect]
     Indication: ARTHRALGIA
     Route: 048
     Dates: start: 20000609, end: 20041005
  2. BENDROFLUMETHIAZIDE AND POTASSIUM CHLORIDE [Concomitant]
     Route: 048
     Dates: start: 20010201
  3. TRAMADOL HYDROCHLORIDE [Concomitant]
     Route: 048
     Dates: start: 20021106
  4. PROPRANOLOL HYDROCHLORIDE [Concomitant]
     Route: 048

REACTIONS (1)
  - CARDIAC FAILURE [None]
